FAERS Safety Report 5373812-8 (Version None)
Quarter: 2007Q2

REPORT INFORMATION
  Report Type: 
  Country: None (occurrence: None)
  Receive Date: 20070627
  Receipt Date: 20070315
  Transmission Date: 20071010
  Serious: Yes (Life-Threatening, Hospitalization)
  Sender: FDA-Public Use
  Company Number: 487827

PATIENT
  Age: 81 Year
  Sex: Female
  Weight: 82.1 kg

DRUGS (1)
  1. XELODA [Suspect]
     Indication: RECTAL CANCER
     Dosage: 1500 MG 2 PER DAY ORAL
     Route: 048
     Dates: start: 20070305, end: 20070308

REACTIONS (2)
  - ANGINA UNSTABLE [None]
  - CARDIOTOXICITY [None]
